FAERS Safety Report 4735705-6 (Version None)
Quarter: 2005Q3

REPORT INFORMATION
  Report Type: 
  Country: None (occurrence: None)
  Receive Date: 20050804
  Receipt Date: 20050725
  Transmission Date: 20060218
  Serious: Yes (Disabling)
  Sender: FDA-Public Use
  Company Number: 2005073277

PATIENT
  Sex: Female

DRUGS (3)
  1. XALATAN [Suspect]
     Indication: ILL-DEFINED DISORDER
     Dosage: ONE DROP OU (1 DROP EVERY NIGHT), OPHTHALMIC
     Route: 047
     Dates: start: 20050422
  2. AZOPT [Concomitant]
  3. TIMOLOL MALEATE [Concomitant]

REACTIONS (3)
  - CHROMATOPSIA [None]
  - EYE IRRITATION [None]
  - VISUAL ACUITY REDUCED [None]
